FAERS Safety Report 9818800 (Version 2)
Quarter: 2014Q1

REPORT INFORMATION
  Report Type: Spontaneous
  Country: US (occurrence: None)
  Receive Date: 20131223
  Receipt Date: 20140228
  Transmission Date: 20141002
  Serious: Yes (Other)
  Sender: FDA-Public Use
  Company Number: 222344

PATIENT
  Sex: Female

DRUGS (2)
  1. PICATO GEL [Suspect]
     Indication: ACTINIC KERATOSIS
     Dosage: (QD X 3 DAYS), TOPICAL
     Route: 061
     Dates: start: 20130614, end: 20130616
  2. PICATO GEL [Suspect]
     Indication: ACTINIC KERATOSIS
     Dosage: (QD X 3 DAYS), TOPICAL
     Route: 061
     Dates: start: 20130614, end: 20130616

REACTIONS (9)
  - Application site haemorrhage [None]
  - Application site swelling [None]
  - Application site erythema [None]
  - Application site vesicles [None]
  - Application site exfoliation [None]
  - Application site erosion [None]
  - Inappropriate schedule of drug administration [None]
  - Drug administered at inappropriate site [None]
  - Drug ineffective [None]
